FAERS Safety Report 21462674 (Version 1)
Quarter: 2022Q4

REPORT INFORMATION
  Report Type: Spontaneous
  Country: US (occurrence: US)
  Receive Date: 20221017
  Receipt Date: 20221017
  Transmission Date: 20230112
  Serious: No
  Sender: FDA-Public Use
  Company Number: US-AMGEN-USASP2022174944

PATIENT
  Age: 85 Year
  Sex: Female
  Weight: 51.26 kg

DRUGS (6)
  1. PROLIA [Suspect]
     Active Substance: DENOSUMAB
     Indication: Osteoporosis
     Dosage: UNK UNK, Q6MO
     Route: 065
  2. PAXLOVID [Concomitant]
     Active Substance: NIRMATRELVIR\RITONAVIR
     Dosage: 3 TABLETS IN THE MORNING AND 3 IN THE EVENING
     Route: 048
     Dates: start: 20221006
  3. ZINC [Concomitant]
     Active Substance: ZINC
     Dosage: 50 MILLIGRAM, BID
  4. VITAMIN C [Concomitant]
     Active Substance: ASCORBIC ACID
     Dosage: 500 MILLIGRAM, QD
     Route: 048
  5. CALCIUM [Concomitant]
     Active Substance: CALCIUM
     Dosage: 600 MILLIGRAM, QD
     Route: 048
  6. OPTIVITE [Concomitant]
     Dosage: 1 PILL, QD
     Route: 048

REACTIONS (1)
  - Therapeutic product effect decreased [Unknown]
